FAERS Safety Report 15798045 (Version 2)
Quarter: 2019Q1

REPORT INFORMATION
  Report Type: Spontaneous
  Country: CN (occurrence: CN)
  Receive Date: 20190108
  Receipt Date: 20190130
  Transmission Date: 20190417
  Serious: Yes (Other)
  Sender: FDA-Public Use
  Company Number: CN-PFIZER INC-2019009081

PATIENT
  Age: 77 Year
  Sex: Female
  Weight: 60 kg

DRUGS (13)
  1. DOXYCYCLINE HYDROCHLORIDE HEMIETHANOLATE HEM I [Suspect]
     Active Substance: DOXYCYCLINE HYCLATE
     Indication: LUNG INFECTION
     Dosage: 0.1 G, 2X/DAY
     Route: 048
     Dates: start: 20180719, end: 20180801
  2. AMBROXOL [Concomitant]
     Active Substance: AMBROXOL
     Indication: PRODUCTIVE COUGH
     Dosage: UNK
     Dates: start: 20180719
  3. DOMPERIDONE [Concomitant]
     Active Substance: DOMPERIDONE
     Indication: GASTROINTESTINAL MOTILITY DISORDER
     Dosage: UNK
     Route: 055
     Dates: start: 20180719
  4. FUDOSTEINE [Concomitant]
     Active Substance: FUDOSTEINE
     Indication: COUGH
  5. BUDESONIDE. [Concomitant]
     Active Substance: BUDESONIDE
     Indication: COUGH
  6. TERBUTALINE [Concomitant]
     Active Substance: TERBUTALINE
     Indication: COUGH
  7. DOXOFYLLINE [Concomitant]
     Active Substance: DOXOFYLLINE
     Indication: BRONCHOSPASM
     Dosage: UNK
     Dates: start: 20180719
  8. BUDESONIDE. [Concomitant]
     Active Substance: BUDESONIDE
     Indication: PRODUCTIVE COUGH
     Dosage: UNK (ATOMIZED SUSPENSION)
     Dates: start: 20180719
  9. IPRATROPIUM [Concomitant]
     Active Substance: IPRATROPIUM
     Indication: COUGH
  10. TAZOCIN [Suspect]
     Active Substance: PIPERACILLIN SODIUM\TAZOBACTAM SODIUM
     Indication: LUNG INFECTION
     Dosage: 4.5 G, 3X/DAY
     Route: 041
     Dates: start: 20180719, end: 20180801
  11. FUDOSTEINE [Concomitant]
     Active Substance: FUDOSTEINE
     Indication: PRODUCTIVE COUGH
     Dosage: UNK
     Dates: start: 20180719
  12. TERBUTALINE [Concomitant]
     Active Substance: TERBUTALINE
     Indication: PRODUCTIVE COUGH
     Dosage: UNK (ATOMIZED SOLUTION)
     Dates: start: 20180719
  13. IPRATROPIUM [Concomitant]
     Active Substance: IPRATROPIUM
     Indication: PRODUCTIVE COUGH
     Dosage: UNK (BROMIDE ATOMIZED SOLUTION)
     Dates: start: 20180719

REACTIONS (3)
  - Platelet count decreased [Recovering/Resolving]
  - Hypokalaemia [Recovering/Resolving]
  - Rales [None]

NARRATIVE: CASE EVENT DATE: 20180730
